FAERS Safety Report 19909861 (Version 1)
Quarter: 2021Q4

REPORT INFORMATION
  Report Type: Spontaneous
  Country: ES (occurrence: ES)
  Receive Date: 20211003
  Receipt Date: 20211003
  Transmission Date: 20220303
  Serious: Yes (Life-Threatening, Other)
  Sender: FDA-Public Use
  Company Number: None

PATIENT
  Age: 46 Year
  Sex: Male
  Weight: 88 kg

DRUGS (6)
  1. INFLIXIMAB [Suspect]
     Active Substance: INFLIXIMAB
     Indication: Ankylosing spondylitis
     Dosage: INDUCTION PHASE 0, 2 AND 6 WEEKS. IN MAINTENANCE, 500 MG EVERY 8 WEEKS, 1 VIAL
     Route: 042
     Dates: start: 20210827, end: 20210910
  2. CLORAZEPATE DIPOTASSIUM [Concomitant]
     Active Substance: CLORAZEPATE DIPOTASSIUM
     Indication: Product used for unknown indication
     Dosage: 20 TABLETS
     Route: 065
  3. LEXATIN [Concomitant]
     Indication: Product used for unknown indication
     Dosage: 30 CAPSULES
     Route: 065
  4. ALPRAZOLAM [Concomitant]
     Active Substance: ALPRAZOLAM
     Indication: Product used for unknown indication
     Dosage: 30 TABLETS
     Route: 065
  5. ARCOXIA [Concomitant]
     Active Substance: ETORICOXIB
     Indication: Product used for unknown indication
     Dosage: 28 TABLETS
     Route: 065
  6. ESOMEPRAZOL PENSA [Concomitant]
     Indication: Product used for unknown indication
     Dosage: GASTRO-RESISTANT TABLETS EFG, 56 TABLETS
     Route: 065

REACTIONS (5)
  - Dizziness [Recovered/Resolved]
  - Chest discomfort [Recovered/Resolved]
  - Erythema [Recovered/Resolved]
  - Dyspnoea [Recovered/Resolved]
  - Product use issue [Unknown]

NARRATIVE: CASE EVENT DATE: 20210910
